FAERS Safety Report 5291222-9 (Version None)
Quarter: 2007Q2

REPORT INFORMATION
  Report Type: 
  Country: None (occurrence: None)
  Receive Date: 20070409
  Receipt Date: 20070329
  Transmission Date: 20071010
  Serious: Yes (Other)
  Sender: FDA-Public Use
  Company Number: US-PFIZER INC-2007026419

PATIENT
  Sex: Female
  Weight: 81.6 kg

DRUGS (8)
  1. CHANTIX [Suspect]
     Indication: SMOKING CESSATION THERAPY
     Dates: start: 20070311, end: 20070320
  2. XANAX [Suspect]
     Indication: ANXIETY
  3. VYTORIN [Concomitant]
  4. LEVOXYL [Concomitant]
  5. LISINOPRIL [Concomitant]
  6. PROZAC [Concomitant]
  7. PIOGLITAZONE [Concomitant]
  8. METFORMIN HCL [Concomitant]

REACTIONS (5)
  - ABNORMAL DREAMS [None]
  - FEELING ABNORMAL [None]
  - HALLUCINATION [None]
  - MEMORY IMPAIRMENT [None]
  - PERSONALITY CHANGE [None]
